FAERS Safety Report 11202051 (Version 1)
Quarter: 2015Q2

REPORT INFORMATION
  Report Type: Spontaneous
  Country: US (occurrence: None)
  Receive Date: 20150617
  Receipt Date: 20150617
  Transmission Date: 20150821
  Serious: Yes (Hospitalization)
  Sender: FDA-Public Use
  Company Number: NSR_02138_2015

PATIENT
  Age: 59 Year
  Sex: Male

DRUGS (4)
  1. HALOPERIDOL. [Concomitant]
     Active Substance: HALOPERIDOL
  2. ANTIBIOTICS [Suspect]
     Active Substance: UNSPECIFIED INGREDIENT
  3. TIZANIDINE (TIZANIDINE) [Suspect]
     Active Substance: TIZANIDINE
     Indication: PRODUCT USED FOR UNKNOWN INDICATION
  4. BACLOFEN 10MG [Suspect]
     Active Substance: BACLOFEN
     Indication: PRODUCT USED FOR UNKNOWN INDICATION
     Dosage: 240 MG PER DAY (EXTRA 1 TO 2 DOSES))

REACTIONS (21)
  - Disorientation [None]
  - Osteomyelitis [None]
  - Confusional state [None]
  - Pyrexia [None]
  - Vomiting [None]
  - Agitation [None]
  - Hallucination, visual [None]
  - Hypophagia [None]
  - Hypotension [None]
  - Delirium [None]
  - Motor dysfunction [None]
  - Renal tubular necrosis [None]
  - Tachycardia [None]
  - Cogwheel rigidity [None]
  - Autonomic nervous system imbalance [None]
  - Extradural abscess [None]
  - Nausea [None]
  - Drug level increased [None]
  - Acute kidney injury [None]
  - Extrapyramidal disorder [None]
  - Drug withdrawal syndrome [None]
